FAERS Safety Report 9772468 (Version 1)
Quarter: 2013Q4

REPORT INFORMATION
  Report Type: Spontaneous
  Country: US (occurrence: None)
  Receive Date: 20131217
  Receipt Date: 20131217
  Transmission Date: 20140711
  Serious: Yes (Other)
  Sender: FDA-Public Use
  Company Number: 2013-US-003939

PATIENT
  Age: 37 Year
  Sex: Female
  Weight: 56.7 kg

DRUGS (6)
  1. XYREM [Suspect]
     Indication: NARCOLEPSY
     Route: 048
     Dates: start: 201302, end: 2013
  2. XYREM [Suspect]
     Indication: NARCOLEPSY
     Route: 048
     Dates: start: 201302, end: 2013
  3. LEXAPRO [Suspect]
     Indication: AFFECTIVE DISORDER
     Route: 048
     Dates: end: 201311
  4. LEXAPRO [Suspect]
     Indication: IRRITABILITY
     Route: 048
     Dates: end: 201311
  5. TRAMADOL [Suspect]
     Indication: HEADACHE
     Route: 048
     Dates: start: 2013
  6. VYVANSE (LISDEXAMFETAMINE MESILATE) [Concomitant]

REACTIONS (4)
  - Serotonin syndrome [None]
  - Pain in extremity [None]
  - Headache [None]
  - Drug interaction [None]
